FAERS Safety Report 9311212 (Version 1)
Quarter: 2013Q2

REPORT INFORMATION
  Report Type: Spontaneous
  Country: US (occurrence: US)
  Receive Date: 20130528
  Receipt Date: 20130528
  Transmission Date: 20140414
  Serious: No
  Sender: FDA-Public Use
  Company Number: US-PFIZER INC-2013159692

PATIENT
  Age: 37 Year
  Sex: Female

DRUGS (1)
  1. ARGATROBAN [Suspect]
     Dosage: 7 MCG/KG/MIN
     Route: 042
     Dates: start: 20130519

REACTIONS (1)
  - Drug ineffective [Unknown]
